FAERS Safety Report 10600892 (Version 1)
Quarter: 2014Q4

REPORT INFORMATION
  Report Type: Spontaneous
  Country: US (occurrence: None)
  Receive Date: 20141120
  Receipt Date: 20141120
  Transmission Date: 20150529
  Serious: Yes (Death, Other)
  Sender: FDA-Public Use
  Company Number: ADR-2014-01160

PATIENT
  Age: 58 Year
  Sex: Male

DRUGS (3)
  1. BACLOFEN. [Suspect]
     Active Substance: BACLOFEN
  2. VALIUM [Suspect]
     Active Substance: DIAZEPAM
  3. BACLOFEN INTRATHECAL 2000 MCG/ML (CANGENE) [Suspect]
     Active Substance: BACLOFEN
     Indication: MUSCLE SPASTICITY

REACTIONS (6)
  - Dysphagia [None]
  - Muscle spasms [None]
  - Gun shot wound [None]
  - Intentional self-injury [None]
  - Wrong technique in drug usage process [None]
  - Pneumonia [None]

NARRATIVE: CASE EVENT DATE: 20140526
